FAERS Safety Report 9287732 (Version 1)
Quarter: 2013Q2

REPORT INFORMATION
  Report Type: Spontaneous
  Country: US (occurrence: US)
  Receive Date: 20130514
  Receipt Date: 20130514
  Transmission Date: 20140414
  Serious: No
  Sender: FDA-Public Use
  Company Number: US-009507513-1305USA006644

PATIENT
  Age: 19 Year
  Sex: Female

DRUGS (1)
  1. IMPLANON [Suspect]
     Dosage: EVERY 3 YEARS, 1 ROD
     Route: 059
     Dates: start: 20100506

REACTIONS (3)
  - Expired drug administered [Unknown]
  - Incorrect drug administration duration [Unknown]
  - No adverse event [Unknown]
